FAERS Safety Report 17673029 (Version 3)
Quarter: 2020Q2

REPORT INFORMATION
  Report Type: Report from Study
  Country: None (occurrence: US)
  Receive Date: 20200416
  Receipt Date: 20200514
  Transmission Date: 20200713
  Serious: Yes (Other)
  Sender: FDA-Public Use
  Company Number: US-ABBVIE-20K-163-3358653-00

PATIENT
  Age: 56 Year
  Sex: Female

DRUGS (1)
  1. HUMIRA [Suspect]
     Active Substance: ADALIMUMAB
     Indication: COLITIS ULCERATIVE
     Dosage: DAY 1
     Route: 058
     Dates: start: 20200314, end: 20200314

REACTIONS (11)
  - Limb injury [Unknown]
  - Wrong technique in product usage process [Unknown]
  - Vascular injury [Unknown]
  - Gastrointestinal sounds abnormal [Unknown]
  - Skin laceration [Unknown]
  - Abnormal faeces [Not Recovered/Not Resolved]
  - Fear of disease [Unknown]
  - Abdominal pain upper [Recovered/Resolved]
  - Diarrhoea [Unknown]
  - Intentional dose omission [Unknown]
  - Traumatic haemorrhage [Unknown]

NARRATIVE: CASE EVENT DATE: 2020
